FAERS Safety Report 5825134-6 (Version None)
Quarter: 2008Q3

REPORT INFORMATION
  Report Type: 
  Country: None (occurrence: None)
  Receive Date: 20080723
  Receipt Date: 20080711
  Transmission Date: 20090109
  Serious: Yes (Life-Threatening)
  Sender: FDA-Public Use
  Company Number: 2008070239

PATIENT
  Sex: Female

DRUGS (13)
  1. INTRALIPID 20% [Suspect]
     Indication: PARENTERAL NUTRITION
     Dosage: 840 ML, 1 IN 1 HR, INTRAVENOUS DRIP
     Route: 041
     Dates: start: 20080709, end: 20080709
  2. PROTEIN (PROTEIN SUPPLEMENTS) (PROTEIN SUPPLEMENTS) [Concomitant]
  3. DEXTROSE 20% (GLUCOSE) (GLUCOSE) [Concomitant]
  4. SODIUM (SODIUM) (SODIUM) [Concomitant]
  5. POTASSIUM (POTASSIUM) (POTASSIUM) [Concomitant]
  6. CALCIUM (CALCIUM (CALCIUM) [Concomitant]
  7. MAGNESIUM (MAGNESIUM) (MAGNESIUM) [Concomitant]
  8. PHOSPHATE (PHOSPHATE-SANDOZ) (PHOSPHATE-SANDOZ) [Concomitant]
  9. TRACE ELEMENTS (TRACE ELEMENTS) (TRACE ELEMENTS) [Concomitant]
  10. MULTIVITAMIN (MULTIVITAMINS) (MULTIVITAMINS) [Concomitant]
  11. HEPARIN [Concomitant]
  12. SELENIUM (SELENIUM) (SELENIUM) [Concomitant]
  13. CARNITINE (CARNITINE) (CARNITINE) [Concomitant]

REACTIONS (4)
  - BLOOD GLUCOSE INCREASED [None]
  - INAPPROPRIATE DEVICE PROGRAMMING [None]
  - INCORRECT DRUG ADMINISTRATION RATE [None]
  - METABOLIC FUNCTION TEST ABNORMAL [None]
